FAERS Safety Report 8050945-9 (Version None)
Quarter: 2012Q1

REPORT INFORMATION
  Report Type: 
  Country: None (occurrence: None)
  Receive Date: 20120117
  Receipt Date: 20120110
  Transmission Date: 20120608
  Serious: Yes (Death, Hospitalization)
  Sender: FDA-Public Use
  Company Number: PHHY2012SE002618

PATIENT
  Age: 65 Year
  Sex: Male

DRUGS (1)
  1. VOLTAREN [Suspect]
     Indication: MYALGIA
     Dosage: UNK
     Dates: start: 20111001

REACTIONS (7)
  - HEART INJURY [None]
  - MYALGIA [None]
  - VENTRICULAR SEPTAL DEFECT ACQUIRED [None]
  - PAIN IN EXTREMITY [None]
  - MYOCARDIAL INFARCTION [None]
  - CARDIAC ARREST [None]
  - CARDIAC FAILURE [None]
